FAERS Safety Report 11148358 (Version 2)
Quarter: 2015Q2

REPORT INFORMATION
  Report Type: Spontaneous
  Country: JP (occurrence: JP)
  Receive Date: 20150529
  Receipt Date: 20150609
  Transmission Date: 20150821
  Serious: Yes (Death, Life-Threatening, Other)
  Sender: FDA-Public Use
  Company Number: JP-PFIZER INC-2015139871

PATIENT
  Age: 83 Year
  Sex: Female
  Weight: 43 kg

DRUGS (3)
  1. AZULFIDINE EN-TABS [Suspect]
     Active Substance: SULFASALAZINE
     Dosage: UNK
     Dates: start: 2002
  2. ENBREL [Concomitant]
     Active Substance: ETANERCEPT
     Indication: RHEUMATOID ARTHRITIS
     Dosage: UNK
     Dates: start: 2010
  3. RHEUMATREX [Suspect]
     Active Substance: METHOTREXATE SODIUM
     Indication: RHEUMATOID ARTHRITIS
     Dosage: UNK
     Dates: start: 2002, end: 201206

REACTIONS (3)
  - Pancytopenia [Fatal]
  - Epstein-Barr virus associated lymphoproliferative disorder [Fatal]
  - Diffuse large B-cell lymphoma [Fatal]

NARRATIVE: CASE EVENT DATE: 201206
